FAERS Safety Report 6603639-8 (Version None)
Quarter: 2010Q1

REPORT INFORMATION
  Report Type: 
  Country: None (occurrence: None)
  Receive Date: 20100226
  Receipt Date: 20091218
  Transmission Date: 20100710
  Serious: No
  Sender: FDA-Public Use
  Company Number: A0835943A

PATIENT
  Age: 38 Year
  Sex: Female

DRUGS (2)
  1. VALACYCLOVIR [Suspect]
     Indication: GENITAL HERPES
     Dosage: 500MG PER DAY
     Route: 048
     Dates: start: 20091213, end: 20091214
  2. DESOGESTREL AND ETHINYL ESTRADIOL [Concomitant]

REACTIONS (1)
  - PARAESTHESIA [None]
